FAERS Safety Report 24397636 (Version 1)
Quarter: 2024Q4

REPORT INFORMATION
  Report Type: Other
  Country: IT (occurrence: IT)
  Receive Date: 20241004
  Receipt Date: 20241004
  Transmission Date: 20250115
  Serious: Yes (Life-Threatening, Other)
  Sender: BIOCON
  Company Number: IT-EMA-DD-20240923-7482679-065259

PATIENT

DRUGS (34)
  1. ETANERCEPT [Suspect]
     Active Substance: ETANERCEPT
     Indication: Haemophagocytic lymphohistiocytosis
     Dosage: 25 TO 50 MG/KG/WEEK (0.8 MG/KG/WEEK)
     Route: 058
     Dates: start: 201310, end: 201803
  2. ETANERCEPT [Suspect]
     Active Substance: ETANERCEPT
     Indication: Still^s disease
     Dosage: 25 TO 50 MG/KG/WEEK (0.8 MG/KG/WEEK)
     Route: 058
     Dates: start: 200901, end: 201308
  3. ETANERCEPT [Suspect]
     Active Substance: ETANERCEPT
     Dosage: 25 TO 50 MG/KG/WEEK (0.8 MG/KG/WEEK)
     Route: 058
     Dates: start: 200507, end: 200512
  4. ETANERCEPT [Suspect]
     Active Substance: ETANERCEPT
     Dosage: UNK
     Route: 065
  5. ADALIMUMAB [Suspect]
     Active Substance: ADALIMUMAB
     Indication: Still^s disease
     Dosage: 40 MG/2 WEEKS
     Route: 058
     Dates: start: 201308, end: 201310
  6. ADALIMUMAB [Suspect]
     Active Substance: ADALIMUMAB
     Indication: Haemophagocytic lymphohistiocytosis
     Dosage: 20 MG/2 WEEKS
     Route: 058
     Dates: start: 200608
  7. ADALIMUMAB [Suspect]
     Active Substance: ADALIMUMAB
     Dosage: UNK
     Route: 065
  8. PREDNISONE [Suspect]
     Active Substance: PREDNISONE
     Indication: Haemophagocytic lymphohistiocytosis
     Dosage: 5 MILLIGRAM, QD, 0.08 MG/KG
     Route: 048
  9. PREDNISONE [Suspect]
     Active Substance: PREDNISONE
     Indication: Still^s disease
     Dosage: 0.08 MILLIGRAM/KILOGRAM, QD
     Route: 048
  10. PREDNISONE [Suspect]
     Active Substance: PREDNISONE
     Dosage: 0.15 MILLIGRAM/KILOGRAM, QD
     Route: 048
  11. THALIDOMIDE [Suspect]
     Active Substance: THALIDOMIDE
     Indication: Haemophagocytic lymphohistiocytosis
     Dosage: 2.5 MG/KG, DAILY
     Route: 048
     Dates: start: 200508, end: 200512
  12. THALIDOMIDE [Suspect]
     Active Substance: THALIDOMIDE
     Indication: Still^s disease
     Dosage: 2.5 MG/KG, DAILY
     Route: 048
     Dates: start: 200606, end: 200608
  13. THALIDOMIDE [Suspect]
     Active Substance: THALIDOMIDE
     Dosage: 2.5 MG/KG, DAILY
     Route: 048
     Dates: start: 200408, end: 200507
  14. THALIDOMIDE [Suspect]
     Active Substance: THALIDOMIDE
     Dosage: 2.5 MG/KG, DAILY
     Route: 048
     Dates: start: 200807, end: 200901
  15. THALIDOMIDE [Suspect]
     Active Substance: THALIDOMIDE
     Dosage: UNK
     Route: 065
  16. ABATACEPT [Suspect]
     Active Substance: ABATACEPT
     Indication: Still^s disease
     Dosage: 10 MG/KG, 10 MG/KG EVERY 4 WEEKS
     Route: 042
     Dates: start: 200807, end: 200812
  17. ABATACEPT [Suspect]
     Active Substance: ABATACEPT
     Indication: Haemophagocytic lymphohistiocytosis
  18. ANAKINRA [Suspect]
     Active Substance: ANAKINRA
     Indication: Still^s disease
     Dosage: UNK
     Route: 065
  19. ANAKINRA [Suspect]
     Active Substance: ANAKINRA
     Indication: Haemophagocytic lymphohistiocytosis
     Dosage: 2 - 5 MG/KG/DAY UP TO 100 MG/DAY
     Route: 042
     Dates: start: 200507
  20. ANAKINRA [Suspect]
     Active Substance: ANAKINRA
     Dosage: 2 - 5 MG/KG/DAY UP TO 100 MG/DAY
     Route: 042
     Dates: start: 200512
  21. ANAKINRA [Suspect]
     Active Substance: ANAKINRA
     Dosage: 2 - 5 MG/KG/DAY UP TO 100 MG/DAY
     Route: 042
     Dates: start: 201310
  22. ANAKINRA [Suspect]
     Active Substance: ANAKINRA
     Dosage: 2 - 5 MG/KG/DAY UP TO 100 MG/DAY
     Route: 042
     Dates: start: 200804, end: 200806
  23. CYCLOSPORINE [Suspect]
     Active Substance: CYCLOSPORINE
     Indication: Still^s disease
     Dosage: UNK
     Route: 065
  24. CYCLOSPORINE [Suspect]
     Active Substance: CYCLOSPORINE
     Indication: Haemophagocytic lymphohistiocytosis
     Dosage: 3-4 MG/KG/DAY ORAL OR 2 MG/KG/DAY
     Route: 048
     Dates: start: 200606, end: 201011
  25. CYCLOSPORINE [Suspect]
     Active Substance: CYCLOSPORINE
     Dosage: 3-4 MG/KG/DAY ORAL OR 2 MG/KG/DAY
     Route: 048
     Dates: start: 200512, end: 200603
  26. TOCILIZUMAB [Suspect]
     Active Substance: TOCILIZUMAB
     Indication: Still^s disease
     Dosage: UNK
     Route: 065
  27. TOCILIZUMAB [Suspect]
     Active Substance: TOCILIZUMAB
     Indication: Haemophagocytic lymphohistiocytosis
     Dosage: 12 MG/KG/2 WEEKS
     Route: 065
     Dates: start: 200701, end: 200702
  28. BARICITINIB [Suspect]
     Active Substance: BARICITINIB
     Indication: Haemophagocytic lymphohistiocytosis
     Dosage: 4 MG, DAILY
     Route: 048
     Dates: start: 202007, end: 202205
  29. BARICITINIB [Suspect]
     Active Substance: BARICITINIB
     Indication: Still^s disease
  30. METHOTREXATE SODIUM [Suspect]
     Active Substance: METHOTREXATE SODIUM
     Indication: Haemophagocytic lymphohistiocytosis
     Dosage: 15 MG/M2, WEEKLY
     Route: 058
     Dates: start: 200408, end: 200603
  31. METHOTREXATE SODIUM [Suspect]
     Active Substance: METHOTREXATE SODIUM
     Dosage: 15 MG/M2, WEEKLY
     Route: 058
     Dates: start: 201007
  32. METHOTREXATE [Suspect]
     Active Substance: METHOTREXATE
     Indication: Still^s disease
     Dosage: 15 MILLIGRAM, QW
     Route: 058
  33. CANAKINUMAB [Suspect]
     Active Substance: CANAKINUMAB
     Indication: Haemophagocytic lymphohistiocytosis
     Dosage: 300 MG/4 WEEKS
     Route: 065
     Dates: start: 201803, end: 202007
  34. AZATHIOPRINE [Suspect]
     Active Substance: AZATHIOPRINE
     Indication: Haemophagocytic lymphohistiocytosis
     Dosage: 2 MG/KG, DAILY
     Route: 048
     Dates: start: 200603, end: 200606

REACTIONS (7)
  - Haemophagocytic lymphohistiocytosis [Unknown]
  - Still^s disease [Unknown]
  - COVID-19 [Unknown]
  - Drug ineffective for unapproved indication [Unknown]
  - Thrombotic microangiopathy [Unknown]
  - Steroid dependence [Unknown]
  - Off label use [Unknown]
